FAERS Safety Report 5202222-9 (Version None)
Quarter: 2007Q1

REPORT INFORMATION
  Report Type: 
  Country: None (occurrence: None)
  Receive Date: 20070109
  Receipt Date: 20061229
  Transmission Date: 20070707
  Serious: Yes (Hospitalization, Other)
  Sender: FDA-Public Use
  Company Number: TR-NOVOPROD-259145

PATIENT
  Sex: Female
  Weight: 1.1 kg

DRUGS (6)
  1. NOVORAPID [Suspect]
     Indication: DIABETES MELLITUS INSULIN-DEPENDENT
     Dosage: 10 U, TID
     Route: 064
  2. LANTUS [Suspect]
     Indication: DIABETES MELLITUS INSULIN-DEPENDENT
     Dosage: 22 U, QD
     Route: 064
  3. FERRO SANOL [Suspect]
     Indication: ANAEMIA
     Dosage: 20 MG, QD
     Route: 064
     Dates: start: 20040617
  4. CELESTON                           /00008501/ [Suspect]
     Route: 064
     Dates: start: 20050110, end: 20050112
  5. AMBROKSOL [Suspect]
     Indication: DRUG USE FOR UNKNOWN INDICATION
     Route: 064
     Dates: start: 20050110, end: 20050112
  6. HUMULIN                            /00646001/ [Suspect]
     Indication: DIABETES MELLITUS INSULIN-DEPENDENT
     Route: 064
     Dates: start: 20050112

REACTIONS (2)
  - FOETAL GROWTH RETARDATION [None]
  - NEONATAL RESPIRATORY DISTRESS SYNDROME [None]
